FAERS Safety Report 9563417 (Version 1)
Quarter: 2013Q3

REPORT INFORMATION
  Report Type: Spontaneous
  Country: US (occurrence: None)
  Receive Date: 20130926
  Receipt Date: 20130926
  Transmission Date: 20140515
  Serious: No
  Sender: FDA-Public Use
  Company Number: None

PATIENT
  Age: 59 Year
  Sex: Female
  Weight: 86.18 kg

DRUGS (1)
  1. DOXIL [Suspect]
     Indication: FALLOPIAN TUBE CANCER
     Dates: start: 20130716, end: 20130910

REACTIONS (5)
  - Skin exfoliation [None]
  - Pain [None]
  - Erythema [None]
  - Rash generalised [None]
  - Local swelling [None]
